FAERS Safety Report 5725555-6 (Version None)
Quarter: 2008Q2

REPORT INFORMATION
  Report Type: 
  Country: None (occurrence: None)
  Receive Date: 20080501
  Receipt Date: 20080418
  Transmission Date: 20081010
  Serious: Yes (Other)
  Sender: FDA-Public Use
  Company Number: PHHY2008BR06491

PATIENT

DRUGS (1)
  1. FORASEQ [Suspect]
     Indication: ASTHMA
     Dosage: 12/400 UG, UNK
     Dates: start: 20080417

REACTIONS (3)
  - ASTHMA [None]
  - DYSPNOEA [None]
  - INCORRECT DOSE ADMINISTERED [None]
